FAERS Safety Report 8065678-2 (Version None)
Quarter: 2012Q1

REPORT INFORMATION
  Report Type: 
  Country: None (occurrence: None)
  Receive Date: 20120124
  Receipt Date: 20120119
  Transmission Date: 20120608
  Serious: Yes (Other)
  Sender: FDA-Public Use
  Company Number: US-PFIZER INC-2012016172

PATIENT
  Sex: Female
  Weight: 72.562 kg

DRUGS (4)
  1. NARDIL [Suspect]
     Indication: ANXIETY
     Dosage: UNK
     Route: 048
     Dates: start: 19850101
  2. NARDIL [Suspect]
     Indication: DEPRESSION
  3. PLAVIX [Suspect]
     Indication: POSTOPERATIVE CARE
     Dosage: UNK
     Route: 048
     Dates: start: 20100201, end: 20110201
  4. XANAX [Concomitant]
     Dosage: UNK

REACTIONS (2)
  - STENT PLACEMENT [None]
  - MALAISE [None]
